FAERS Safety Report 7032907-3 (Version None)
Quarter: 2010Q4

REPORT INFORMATION
  Report Type: 
  Country: None (occurrence: None)
  Receive Date: 20101007
  Receipt Date: 20100930
  Transmission Date: 20110411
  Serious: Yes (Hospitalization)
  Sender: FDA-Public Use
  Company Number: JP-JNJFOC-20101000492

PATIENT
  Sex: Female
  Weight: 61 kg

DRUGS (9)
  1. DOXIL [Suspect]
     Indication: OVARIAN CANCER RECURRENT
     Route: 042
  2. DOXIL [Suspect]
     Route: 042
  3. JUZEN-TAIHO-TO [Concomitant]
     Route: 048
  4. ADENINE [Concomitant]
     Route: 048
  5. FERROMIA [Concomitant]
     Route: 048
  6. PARIET [Concomitant]
     Route: 048
  7. PRIMPERAN TAB [Concomitant]
     Route: 048
  8. DECADRON [Concomitant]
     Indication: PROPHYLAXIS
     Route: 048
  9. PYDOXAL [Concomitant]
     Indication: PROPHYLAXIS
     Route: 048

REACTIONS (2)
  - INFUSION RELATED REACTION [None]
  - URTICARIA [None]
